FAERS Safety Report 10025350 (Version 3)
Quarter: 2014Q2

REPORT INFORMATION
  Report Type: Spontaneous
  Country: JP (occurrence: JP)
  Receive Date: 20140320
  Receipt Date: 20140625
  Transmission Date: 20141212
  Serious: Yes (Hospitalization)
  Sender: FDA-Public Use
  Company Number: JP-GLAXOSMITHKLINE-B0977180A

PATIENT
  Age: 36 Year
  Sex: Male
  Weight: 79 kg

DRUGS (3)
  1. ARIXTRA [Suspect]
     Indication: THROMBOSIS PROPHYLAXIS
     Dosage: 2.5MG PER DAY
     Route: 058
     Dates: start: 20140130, end: 20140131
  2. LOXONIN [Suspect]
     Indication: FRACTURE PAIN
     Dosage: 60MG THREE TIMES PER DAY
     Route: 048
     Dates: start: 20140120, end: 20140131
  3. TAMIFLU [Suspect]
     Indication: ANTIVIRAL PROPHYLAXIS
     Route: 048
     Dates: start: 20140129, end: 20140131

REACTIONS (2)
  - Shock haemorrhagic [Recovered/Resolved]
  - Melaena [Recovered/Resolved]
